FAERS Safety Report 11204873 (Version 1)
Quarter: 2015Q2

REPORT INFORMATION
  Report Type: Spontaneous
  Country: US (occurrence: US)
  Receive Date: 20150622
  Receipt Date: 20150622
  Transmission Date: 20150821
  Serious: Yes (Other)
  Sender: FDA-Public Use
  Company Number: US-ASTRAZENECA-2015SE59511

PATIENT
  Age: 20459 Day
  Sex: Female
  Weight: 108.9 kg

DRUGS (8)
  1. PLAVIX [Concomitant]
     Active Substance: CLOPIDOGREL BISULFATE
     Indication: ANTICOAGULANT THERAPY
     Route: 048
     Dates: start: 2010
  2. MOVANTIK [Suspect]
     Active Substance: NALOXEGOL OXALATE
     Indication: FREQUENT BOWEL MOVEMENTS
     Dosage: DAILY
     Route: 048
     Dates: start: 201504, end: 201505
  3. CHOLESTEROL MEDICATION [Concomitant]
     Active Substance: UNSPECIFIED INGREDIENT
     Indication: BLOOD CHOLESTEROL ABNORMAL
     Route: 048
  4. MONOPRIL [Concomitant]
     Active Substance: FOSINOPRIL SODIUM
     Indication: BLOOD PRESSURE ABNORMAL
     Dosage: DAILY
     Route: 048
  5. AZAR [Concomitant]
     Indication: HYPERTENSION
     Route: 048
  6. PROBIOTIC [Concomitant]
     Active Substance: PROBIOTICS NOS
     Route: 048
  7. MONOPRIL [Concomitant]
     Active Substance: FOSINOPRIL SODIUM
     Indication: HEART RATE
     Dosage: DAILY
     Route: 048
  8. LIVO [Concomitant]
     Indication: BLOOD CHOLESTEROL ABNORMAL
     Route: 048
     Dates: start: 2012

REACTIONS (2)
  - Constipation [Unknown]
  - Drug dose omission [Unknown]

NARRATIVE: CASE EVENT DATE: 20150526
